FAERS Safety Report 8438206-7 (Version None)
Quarter: 2012Q2

REPORT INFORMATION
  Report Type: 
  Country: None (occurrence: None)
  Receive Date: 20120614
  Receipt Date: 20120612
  Transmission Date: 20120825
  Serious: Yes (Death)
  Sender: FDA-Public Use
  Company Number: DK-FRI-1000023017

PATIENT
  Weight: 56 kg

DRUGS (7)
  1. AMLODIPINE [Suspect]
  2. ALPRAZOLAM [Suspect]
  3. MIANSERINE [Suspect]
  4. KETOBEMIDONE [Suspect]
  5. DIAZEPAM [Suspect]
  6. CITALOPRAM HYDROBROMIDE [Suspect]
     Indication: MENTAL DISORDER
  7. FLUNITRAZEPAM [Suspect]

REACTIONS (2)
  - TOXICITY TO VARIOUS AGENTS [None]
  - OFF LABEL USE [None]
